FAERS Safety Report 4987816-8 (Version None)
Quarter: 2006Q2

REPORT INFORMATION
  Report Type: 
  Country: None (occurrence: None)
  Receive Date: 20060427
  Receipt Date: 20060427
  Transmission Date: 20061013
  Serious: Yes (Hospitalization)
  Sender: FDA-Public Use
  Company Number: None

PATIENT
  Age: 40 Year
  Sex: Female
  Weight: 62 kg

DRUGS (4)
  1. MOTRIN [Suspect]
     Indication: FRACTURE
     Dosage: PO   (DURATION: FEW DAYS)
     Route: 048
  2. MOTRIN [Suspect]
     Indication: PAIN
     Dosage: PO   (DURATION: FEW DAYS)
     Route: 048
  3. ALEVE [Suspect]
     Indication: FRACTURE
     Dosage: PO   (DURATION: FEW DAYS)
     Route: 048
  4. ALEVE [Suspect]
     Indication: PAIN
     Dosage: PO   (DURATION: FEW DAYS)
     Route: 048

REACTIONS (1)
  - MENINGITIS ASEPTIC [None]
